FAERS Safety Report 5029912-5 (Version None)
Quarter: 2006Q2

REPORT INFORMATION
  Report Type: 
  Country: None (occurrence: None)
  Receive Date: 20060620
  Receipt Date: 20060519
  Transmission Date: 20061013
  Serious: Yes (Death, Hospitalization)
  Sender: FDA-Public Use
  Company Number: S06-USA-01700-01

PATIENT
  Age: 48 Year
  Sex: Female

DRUGS (5)
  1. WELLBUTRIN [Suspect]
     Indication: MAJOR DEPRESSION
     Dosage: 150MG PER DAY
     Route: 048
     Dates: start: 20060227
  2. LEXAPRO [Suspect]
     Indication: MAJOR DEPRESSION
     Route: 048
     Dates: start: 20060201, end: 20060301
  3. CELEXA [Suspect]
     Indication: MAJOR DEPRESSION
     Dosage: 40MG PER DAY
     Route: 048
     Dates: start: 20060301, end: 20060503
  4. KLONOPIN [Suspect]
     Indication: MAJOR DEPRESSION
     Dosage: 1MG AT NIGHT
     Route: 048
     Dates: start: 20060301, end: 20060503
  5. TRAZODONE HCL [Suspect]
     Indication: MAJOR DEPRESSION
     Dosage: 100MG AT NIGHT
     Dates: start: 20060301, end: 20060503

REACTIONS (3)
  - ANTIDEPRESSANT DRUG LEVEL BELOW THERAPEUTIC [None]
  - COMPLETED SUICIDE [None]
  - SUICIDAL IDEATION [None]
